FAERS Safety Report 8222254-6 (Version None)
Quarter: 2012Q1

REPORT INFORMATION
  Report Type: 
  Country: None (occurrence: None)
  Receive Date: 20120320
  Receipt Date: 20120313
  Transmission Date: 20120608
  Serious: Yes (Hospitalization)
  Sender: FDA-Public Use
  Company Number: US-GLAXOSMITHKLINE-A0935588A

PATIENT
  Age: 69 Year
  Sex: Male

DRUGS (1)
  1. AVANDIA [Suspect]
     Indication: DIABETES MELLITUS
     Dosage: 4MG PER DAY
     Route: 048
     Dates: start: 20011016, end: 20050425

REACTIONS (22)
  - MYOCARDIAL INFARCTION [None]
  - ATRIAL FLUTTER [None]
  - CARDIOVASCULAR DISORDER [None]
  - AORTIC VALVE CALCIFICATION [None]
  - BUNDLE BRANCH BLOCK RIGHT [None]
  - MYOCARDIAL ISCHAEMIA [None]
  - ATRIAL FIBRILLATION [None]
  - ATRIOVENTRICULAR BLOCK SECOND DEGREE [None]
  - TRICUSPID VALVE INCOMPETENCE [None]
  - CARDIAC VALVE DISEASE [None]
  - CORONARY ARTERY OCCLUSION [None]
  - MITRAL VALVE DISEASE [None]
  - CORONARY ARTERY DISEASE [None]
  - AORTIC ARTERIOSCLEROSIS [None]
  - SUPRAVENTRICULAR EXTRASYSTOLES [None]
  - CAROTID ARTERY DISEASE [None]
  - LEFT VENTRICULAR HYPERTROPHY [None]
  - CAROTID ARTERY STENOSIS [None]
  - DILATATION ATRIAL [None]
  - ARRHYTHMIA [None]
  - AORTIC VALVE INCOMPETENCE [None]
  - MITRAL VALVE SCLEROSIS [None]
